FAERS Safety Report 8608399 (Version 4)
Quarter: 2012Q4

REPORT INFORMATION
  Report Type: 
  Country: DE (occurrence: DE)
  Receive Date: 20120611
  Receipt Date: 20121204
  Transmission Date: 20130627
  Serious: Yes (Other)
  Sender: FDA-Public Use
  Company Number: DE-ROCHE-1074592

PATIENT
  Sex: Female

DRUGS (4)
  1. AVASTIN [Suspect]
     Indication: AGE-RELATED MACULAR DEGENERATION
     Route: 050
     Dates: start: 20100414, end: 201012
  2. AVASTIN [Suspect]
     Route: 050
     Dates: start: 20100622
  3. AVASTIN [Suspect]
     Route: 050
     Dates: start: 20100813
  4. TRAMAL [Concomitant]
     Indication: OSTEOPOROSIS
     Route: 048

REACTIONS (8)
  - Blindness [Not Recovered/Not Resolved]
  - Blood pressure increased [Not Recovered/Not Resolved]
  - Weight decreased [Not Recovered/Not Resolved]
  - Asthenia [Not Recovered/Not Resolved]
  - Cachexia [Not Recovered/Not Resolved]
  - Depression [Not Recovered/Not Resolved]
  - Ill-defined disorder [Unknown]
  - Dry skin [Unknown]
